FAERS Safety Report 20640484 (Version 1)
Quarter: 2022Q1

REPORT INFORMATION
  Report Type: Spontaneous
  Country: US (occurrence: US)
  Receive Date: 20220327
  Receipt Date: 20220327
  Transmission Date: 20220424
  Serious: No
  Sender: FDA-Public Use
  Company Number: US-SA-SAC20220322001551

PATIENT
  Age: 56 Year
  Sex: Female

DRUGS (8)
  1. AUBAGIO [Suspect]
     Active Substance: TERIFLUNOMIDE
     Indication: Multiple sclerosis
     Dosage: 7 MG, QD
     Route: 048
     Dates: start: 20220216
  2. BACLOFEN [Concomitant]
     Active Substance: BACLOFEN
  3. CYMBALTA [Concomitant]
     Active Substance: DULOXETINE HYDROCHLORIDE
  4. GABAPENTIN [Concomitant]
     Active Substance: GABAPENTIN
  5. ESCITALOPRAM OXALATE [Concomitant]
     Active Substance: ESCITALOPRAM OXALATE
  6. ACETAMINOPHEN\HYDROCODONE [Concomitant]
     Active Substance: ACETAMINOPHEN\HYDROCODONE
  7. TECFIDERA [Concomitant]
     Active Substance: DIMETHYL FUMARATE
  8. TECFIDERA [Concomitant]
     Active Substance: DIMETHYL FUMARATE

REACTIONS (1)
  - Faeces soft [Unknown]

NARRATIVE: CASE EVENT DATE: 20220101
